FAERS Safety Report 22340261 (Version 3)
Quarter: 2024Q3

REPORT INFORMATION
  Report Type: Spontaneous
  Country: CA (occurrence: CA)
  Receive Date: 20230518
  Receipt Date: 20240820
  Transmission Date: 20241017
  Serious: Yes (Other)
  Sender: DAIICHI
  Company Number: CA-AstraZeneca-2022A352095

PATIENT
  Sex: Female
  Weight: 65 kg

DRUGS (1)
  1. TRASTUZUMAB DERUXTECAN [Suspect]
     Active Substance: TRASTUZUMAB DERUXTECAN
     Indication: HER2 positive breast cancer
     Dosage: 382 MG, ONCE EVERY 3 WK
     Route: 042

REACTIONS (2)
  - Hip arthroplasty [Unknown]
  - Inappropriate schedule of product administration [Unknown]
